FAERS Safety Report 12202191 (Version 2)
Quarter: 2016Q2

REPORT INFORMATION
  Report Type: Spontaneous
  Country: US (occurrence: US)
  Receive Date: 20160322
  Receipt Date: 20160406
  Transmission Date: 20160815
  Serious: Yes (Other)
  Sender: FDA-Public Use
  Company Number: US-EGALET US INC-US-2016EGA000139

PATIENT

DRUGS (2)
  1. SPRIX [Suspect]
     Active Substance: KETOROLAC TROMETHAMINE
     Indication: PAIN
     Dosage: 1 SPRAY IN 1 NOSTRIL, Q6-8H, PRN
     Route: 045
  2. INDOMETHACIN                       /00003801/ [Interacting]
     Active Substance: INDOMETHACIN
     Indication: PAIN
     Dosage: UNK

REACTIONS (5)
  - Abdominal distension [Unknown]
  - Product quality issue [Unknown]
  - Drug interaction [Unknown]
  - Drug ineffective [Unknown]
  - Weight increased [Unknown]
